FAERS Safety Report 16021596 (Version 1)
Quarter: 2019Q1

REPORT INFORMATION
  Report Type: Spontaneous
  Country: US (occurrence: US)
  Receive Date: 20190301
  Receipt Date: 20190301
  Transmission Date: 20190418
  Serious: Yes (Other)
  Sender: FDA-Public Use
  Company Number: US-MALLINCKRODT-T201901949

PATIENT
  Age: 66 Year
  Sex: Female

DRUGS (1)
  1. OXYCODONE/ACETAMINOPHEN [Suspect]
     Active Substance: ACETAMINOPHEN\OXYCODONE HYDROCHLORIDE
     Indication: PAIN
     Dosage: 7.5/325MG 1 TABLET THREE TIMES A DAY
     Route: 048

REACTIONS (9)
  - Vomiting [Unknown]
  - Asthenia [Unknown]
  - Diarrhoea [Unknown]
  - Body temperature decreased [Unknown]
  - Loss of consciousness [Unknown]
  - Drug ineffective [Unknown]
  - Rapid eye movements sleep abnormal [Unknown]
  - Gait disturbance [Unknown]
  - Tremor [Unknown]
